FAERS Safety Report 11779142 (Version 1)
Quarter: 2015Q4

REPORT INFORMATION
  Report Type: Spontaneous
  Country: GB (occurrence: GB)
  Receive Date: 20151125
  Receipt Date: 20151125
  Transmission Date: 20160304
  Serious: Yes (Other)
  Sender: FDA-Public Use
  Company Number: GB-REGENERON PHARMACEUTICALS, INC.-2015-14217

PATIENT

DRUGS (1)
  1. EYLEA [Suspect]
     Active Substance: AFLIBERCEPT
     Indication: NEOVASCULAR AGE-RELATED MACULAR DEGENERATION
     Dosage: FIRST INJECTION
     Dates: start: 20151030, end: 20151030

REACTIONS (10)
  - Headache [Unknown]
  - Secretion discharge [Unknown]
  - Delirium [Unknown]
  - Hyperventilation [Unknown]
  - Abdominal pain [Unknown]
  - Lip swelling [Unknown]
  - Feeling hot [Unknown]
  - Eye pain [Unknown]
  - Dyspnoea [Unknown]
  - Paraesthesia oral [Unknown]

NARRATIVE: CASE EVENT DATE: 20151030
